FAERS Safety Report 6273389-9 (Version None)
Quarter: 2009Q3

REPORT INFORMATION
  Report Type: 
  Country: None (occurrence: None)
  Receive Date: 20090720
  Receipt Date: 20090707
  Transmission Date: 20100115
  Serious: Yes (Hospitalization)
  Sender: FDA-Public Use
  Company Number: US-BAYER-200923947GPV

PATIENT
  Age: 49 Year
  Sex: Female

DRUGS (3)
  1. ALEMTUZUMAB [Suspect]
     Indication: MULTIPLE SCLEROSIS
     Dosage: TOTAL DAILY DOSE: 12 MG
     Route: 042
     Dates: start: 20050207, end: 20050209
  2. ALEMTUZUMAB [Suspect]
     Dosage: TOTAL DAILY DOSE: 12 MG
     Route: 042
     Dates: start: 20040216, end: 20040220
  3. THIAMAZOLE [Concomitant]
     Route: 065
     Dates: start: 20090404

REACTIONS (1)
  - ACOUSTIC NEUROMA [None]
